FAERS Safety Report 8712565 (Version 3)
Quarter: 2012Q4

REPORT INFORMATION
  Report Type: 
  Country: US (occurrence: US)
  Receive Date: 20120808
  Receipt Date: 20121123
  Transmission Date: 20130627
  Serious: No
  Sender: FDA-Public Use
  Company Number: US-PFIZER INC-2012188900

PATIENT
  Sex: Female
  Weight: 64.4 kg

DRUGS (17)
  1. LYRICA [Suspect]
     Indication: FIBROMYALGIA
     Dosage: 75 mg, 2x/day
     Dates: start: 2010
  2. LYRICA [Suspect]
     Dosage: 225 mg, daily
     Dates: end: 2012
  3. NEURONTIN [Suspect]
     Indication: PAIN
     Dosage: 100 mg, 2x/day
     Dates: start: 2012
  4. INSULIN [Concomitant]
     Indication: DIABETES
     Dosage: 120 mg, 3x/day
  5. GLUCOPHAGE [Concomitant]
     Indication: DIABETES
     Dosage: 500 mg, 4x/day
  6. LISINOPRIL [Concomitant]
     Indication: BLOOD PRESSURE HIGH
     Dosage: 40 mg, daily
  7. HYDROCHLOROTHIAZIDE [Concomitant]
     Indication: BLOOD PRESSURE HIGH
     Dosage: 12.5 mg, daily
  8. CYMBALTA [Concomitant]
     Indication: MENTAL DISORDER
     Dosage: 60 mg, Daily
  9. CYMBALTA [Concomitant]
     Dosage: 30 mg, 2x/day
  10. METFORMIN [Concomitant]
     Indication: DIABETES
     Dosage: 1000 mg, daily
  11. JANUVIA [Concomitant]
     Indication: BLOOD SUGAR INCREASED
     Dosage: UNK, daily
  12. IBUPROFEN [Concomitant]
     Dosage: UNK, 6x/day
  13. SKELAXIN [Concomitant]
     Dosage: 800 mg, UNK
  14. ZOLPIDEM [Concomitant]
     Dosage: UNK
  15. VALIUM [Concomitant]
     Dosage: UNK
  16. TRAZODONE [Concomitant]
     Dosage: UNK
  17. ALEVE [Concomitant]
     Dosage: UNK

REACTIONS (13)
  - Drug ineffective [Unknown]
  - Visual impairment [Not Recovered/Not Resolved]
  - Weight increased [Recovered/Resolved]
  - Alopecia [Not Recovered/Not Resolved]
  - Glycosylated haemoglobin increased [Unknown]
  - Pain [Not Recovered/Not Resolved]
  - Vision blurred [Unknown]
  - Flatulence [Unknown]
  - Abdominal discomfort [Unknown]
  - Constipation [Unknown]
  - Amnesia [Unknown]
  - Anaemia [Unknown]
  - Blood potassium decreased [Unknown]
